FAERS Safety Report 7302639-2 (Version None)
Quarter: 2011Q1

REPORT INFORMATION
  Report Type: 
  Country: None (occurrence: None)
  Receive Date: 20110218
  Receipt Date: 20110207
  Transmission Date: 20110831
  Serious: Yes (Hospitalization, Other)
  Sender: FDA-Public Use
  Company Number: ES-AMGEN-ESPSP2011004103

PATIENT
  Age: 41 Year
  Weight: 90 kg

DRUGS (2)
  1. NPLATE [Suspect]
     Dosage: 1 A?G/KG, UNK
     Route: 058
     Dates: start: 20101105
  2. NPLATE [Suspect]
     Dosage: 2 A?G/KG, UNK
     Dates: end: 20110113

REACTIONS (6)
  - PLATELET COUNT DECREASED [None]
  - PLATELET COUNT INCREASED [None]
  - MUCOSAL HAEMORRHAGE [None]
  - PETECHIAE [None]
  - MULTIPLE SCLEROSIS RELAPSE [None]
  - GINGIVAL BLEEDING [None]
